FAERS Safety Report 23738471 (Version 2)
Quarter: 2024Q2

REPORT INFORMATION
  Report Type: Report from Study
  Country: CA (occurrence: CA)
  Receive Date: 20240412
  Receipt Date: 20240506
  Transmission Date: 20240716
  Serious: Yes (Hospitalization)
  Sender: FDA-Public Use
  Company Number: CA-Eisai-EC-2024-162701

PATIENT
  Age: 87 Year
  Sex: Male

DRUGS (1)
  1. LENVIMA [Suspect]
     Active Substance: LENVATINIB
     Indication: Hepatocellular carcinoma
     Route: 048
     Dates: start: 20240321

REACTIONS (5)
  - Dehydration [Not Recovered/Not Resolved]
  - Thyroid disorder [Not Recovered/Not Resolved]
  - Fatigue [Unknown]
  - Poor quality sleep [Unknown]
  - Nausea [Unknown]

NARRATIVE: CASE EVENT DATE: 20240101
